FAERS Safety Report 5957250-2 (Version None)
Quarter: 2008Q4

REPORT INFORMATION
  Report Type: 
  Country: None (occurrence: None)
  Receive Date: 20081118
  Receipt Date: 20081105
  Transmission Date: 20090506
  Serious: Yes (Other)
  Sender: FDA-Public Use
  Company Number: NL-AMGEN-UK317596

PATIENT

DRUGS (3)
  1. PALIFERMIN [Suspect]
     Indication: STOMATITIS
     Route: 042
  2. CIPROFLOXACIN [Concomitant]
     Route: 065
  3. VALACYCLOVIR HCL [Concomitant]
     Route: 065

REACTIONS (2)
  - ERYTHEMA [None]
  - SKIN HYPERPIGMENTATION [None]
